FAERS Safety Report 21209529 (Version 4)
Quarter: 2022Q3

REPORT INFORMATION
  Report Type: Spontaneous
  Country: JP (occurrence: JP)
  Receive Date: 20220813
  Receipt Date: 20220903
  Transmission Date: 20221027
  Serious: Yes (Death)
  Sender: FDA-Public Use
  Company Number: JP-JNJFOC-20220824991

PATIENT
  Age: 83 Year
  Sex: Male

DRUGS (2)
  1. FENTANYL [Suspect]
     Active Substance: FENTANYL
     Indication: Pain
     Dosage: FENTANYL (MATRIX PATCH) 12.5MCG/HR
     Route: 062
     Dates: start: 20220805, end: 20220806
  2. ENEVO [Concomitant]
     Route: 048
     Dates: start: 20220601

REACTIONS (5)
  - Immobilisation syndrome [Fatal]
  - Decubitus ulcer [Fatal]
  - Infected skin ulcer [Fatal]
  - Therapy naive [Unknown]
  - Off label use [Unknown]

NARRATIVE: CASE EVENT DATE: 20220805
